FAERS Safety Report 7203921-X (Version None)
Quarter: 2010Q4

REPORT INFORMATION
  Report Type: 
  Country: None (occurrence: None)
  Receive Date: 20101230
  Receipt Date: 20101215
  Transmission Date: 20110411
  Serious: Yes (Other)
  Sender: FDA-Public Use
  Company Number: US-SANOFI-AVENTIS-2010SA076809

PATIENT
  Age: 48 Year
  Sex: Female

DRUGS (15)
  1. PLAVIX [Suspect]
     Indication: STENT PLACEMENT
     Route: 048
     Dates: start: 20060101
  2. PLAVIX [Suspect]
     Dates: start: 20090301, end: 20090301
  3. PLAVIX [Suspect]
     Dates: start: 20100101
  4. PLAVIX [Suspect]
     Dates: start: 20100101
  5. INSULIN DETEMIR [Concomitant]
     Dosage: DOSE:25 UNIT(S)
  6. PROCARDIA [Concomitant]
  7. ASPIRIN [Concomitant]
  8. ASPIRIN [Concomitant]
     Dates: start: 20090501
  9. GLYCERYL TRINITRATE [Concomitant]
  10. METOPROLOL [Concomitant]
  11. LISINOPRIL [Concomitant]
  12. AMLODIPINE [Concomitant]
  13. ZOCOR [Concomitant]
  14. TRIAMCINOLONE [Concomitant]
     Indication: SKIN LESION
  15. APIDRA [Concomitant]
     Dosage: 5U TO 10U DEPENDING ON BLOOD SUGAR

REACTIONS (7)
  - BLOOD GLUCOSE INCREASED [None]
  - DIARRHOEA [None]
  - IN-STENT CORONARY ARTERY RESTENOSIS [None]
  - MYOCARDIAL INFARCTION [None]
  - PHARYNGEAL DISORDER [None]
  - SKIN LESION [None]
  - VOMITING [None]
